FAERS Safety Report 12870540 (Version 1)
Quarter: 2016Q4

REPORT INFORMATION
  Report Type: Spontaneous
  Country: NL (occurrence: NL)
  Receive Date: 20161021
  Receipt Date: 20161021
  Transmission Date: 20170207
  Serious: Yes (Life-Threatening)
  Sender: FDA-Public Use
  Company Number: NL-AUROBINDO PHARMA USA, INC-AUR-APL-2014-03864

PATIENT
  Age: 18 Year
  Sex: Male
  Weight: 79 kg

DRUGS (5)
  1. FLUOXETINE [Interacting]
     Active Substance: FLUOXETINE HYDROCHLORIDE
     Dosage: 10 MG, ONCE A DAY
     Route: 065
     Dates: start: 201402, end: 201403
  2. SEROQUEL [Interacting]
     Active Substance: QUETIAPINE FUMARATE
     Indication: DEPRESSION
     Dosage: 50 MG,ONCE A DAY,
     Route: 065
     Dates: start: 201312
  3. PAROXETINE AUROBINDO FILMOMHULDE TABLETTEN 20MG [Interacting]
     Active Substance: PAROXETINE
     Indication: DEPRESSION
     Dosage: 30 MG, ONCE A DAY
     Route: 065
     Dates: start: 201312
  4. MIRTAZAPINE AUROBINDO FILMOMHULDE TABLETTEN 30MG [Suspect]
     Active Substance: MIRTAZAPINE
     Indication: DEPRESSION
     Dosage: 30 MG,ONCE A DAY,
     Route: 065
     Dates: start: 201312
  5. LORAZEPAM. [Interacting]
     Active Substance: LORAZEPAM
     Indication: DEPRESSION
     Dosage: 1 MG,AS NECESSARY,
     Route: 065
     Dates: start: 201312

REACTIONS (3)
  - Drug interaction [Unknown]
  - Insomnia [Unknown]
  - Aggression [Not Recovered/Not Resolved]

NARRATIVE: CASE EVENT DATE: 201403
